FAERS Safety Report 7339767-1 (Version None)
Quarter: 2011Q1

REPORT INFORMATION
  Report Type: 
  Country: None (occurrence: None)
  Receive Date: 20110303
  Receipt Date: 20110303
  Transmission Date: 20110831
  Serious: Yes (Disabling)
  Sender: FDA-Public Use
  Company Number: None

PATIENT
  Sex: Male
  Weight: 83.9154 kg

DRUGS (1)
  1. RETISERT [Suspect]
     Indication: EYE DISORDER
     Dosage: IMPLANT
     Dates: start: 20020620, end: 20060929

REACTIONS (3)
  - GLAUCOMA [None]
  - BLINDNESS UNILATERAL [None]
  - CATARACT [None]
